FAERS Safety Report 6813571-2 (Version None)
Quarter: 2010Q3

REPORT INFORMATION
  Report Type: 
  Country: None (occurrence: None)
  Receive Date: 20100701
  Receipt Date: 20100623
  Transmission Date: 20110219
  Serious: Yes (Hospitalization)
  Sender: FDA-Public Use
  Company Number: JP-BAXTER-2010BH017199

PATIENT
  Age: 66 Year
  Sex: Male

DRUGS (11)
  1. ENDOXAN BAXTER [Suspect]
     Indication: PRODUCT USED FOR UNKNOWN INDICATION
     Route: 065
     Dates: start: 20100511, end: 20100521
  2. FINIBAX [Suspect]
     Indication: FEBRILE NEUTROPENIA
     Route: 041
     Dates: start: 20100525, end: 20100531
  3. PREDONINE [Concomitant]
     Indication: ERYTHEMA MULTIFORME
     Route: 048
     Dates: start: 20100401
  4. PREDONINE [Concomitant]
     Route: 048
     Dates: start: 20100525
  5. COTRIM [Concomitant]
     Indication: PRODUCT USED FOR UNKNOWN INDICATION
     Route: 065
     Dates: start: 20100510
  6. ALLEGRA [Concomitant]
     Indication: ERYTHEMA MULTIFORME
     Route: 048
     Dates: start: 20100424
  7. BONALON [Concomitant]
     Indication: PRODUCT USED FOR UNKNOWN INDICATION
     Route: 048
     Dates: start: 20100425
  8. TAKEPRON [Concomitant]
     Indication: PRODUCT USED FOR UNKNOWN INDICATION
     Route: 048
     Dates: start: 20100425
  9. CRAVIT [Concomitant]
     Indication: PRODUCT USED FOR UNKNOWN INDICATION
     Route: 048
     Dates: start: 20100517
  10. ITRIZOLE [Concomitant]
     Indication: PRODUCT USED FOR UNKNOWN INDICATION
     Route: 048
     Dates: start: 20100517
  11. PREDONINE [Concomitant]
     Route: 048
     Dates: start: 20100601

REACTIONS (1)
  - ERYTHEMA MULTIFORME [None]
